FAERS Safety Report 8607031 (Version 4)
Quarter: 2013Q2

REPORT INFORMATION
  Report Type: Spontaneous
  Country: JP (occurrence: JP)
  Receive Date: 20120611
  Receipt Date: 20130517
  Transmission Date: 20140414
  Serious: Yes (Hospitalization)
  Sender: FDA-Public Use
  Company Number: JP-BRISTOL-MYERS SQUIBB COMPANY-16660235

PATIENT
  Age: 27 Year
  Sex: Female

DRUGS (5)
  1. ERBITUX SOLN FOR INF 5MG/ML [Suspect]
     Indication: COLON CANCER
     Dosage: 6-6JAN10:500MG?300MG:1 IN 1WK?15JAN-12MAR10?5TH INF:5FEB10
     Route: 041
     Dates: start: 20100106
  2. IRINOTECAN [Concomitant]
     Indication: COLON CANCER
     Dosage: 06JAN-22JAN10:120MG?12MAR-12MAR10:300MG
     Route: 041
     Dates: start: 20100106, end: 20100312
  3. POLARAMINE [Concomitant]
     Indication: PREMEDICATION
     Dosage: INCLUDING SKIPPED WEEK
     Route: 042
     Dates: start: 20100106, end: 20100312
  4. DEXART [Concomitant]
     Indication: PREMEDICATION
     Dosage: INCLUDING SKIPPED WEEK
     Route: 041
     Dates: start: 20100106, end: 20100312
  5. GRANISETRON [Concomitant]
     Indication: ANTIEMETIC SUPPORTIVE CARE
     Route: 041
     Dates: start: 20100106, end: 20100312

REACTIONS (3)
  - Impaired healing [Recovered/Resolved]
  - Wound dehiscence [Recovered/Resolved]
  - Dermatitis acneiform [Not Recovered/Not Resolved]
